FAERS Safety Report 9014783 (Version 1)
Quarter: 2013Q1

REPORT INFORMATION
  Report Type: Spontaneous
  Country: US (occurrence: US)
  Receive Date: 20130115
  Receipt Date: 20130115
  Transmission Date: 20140127
  Serious: Yes (Hospitalization, Other)
  Sender: FDA-Public Use
  Company Number: US-009507513-2011SP048397

PATIENT
  Sex: 0

DRUGS (2)
  1. NUVARING [Suspect]
     Indication: CONTRACEPTION
     Route: 067
     Dates: start: 200811, end: 200910
  2. NUVARING [Suspect]
     Indication: MENSTRUATION IRREGULAR

REACTIONS (4)
  - Tachycardia [Recovered/Resolved]
  - Influenza [Unknown]
  - Pulmonary embolism [Unknown]
  - Constipation [Unknown]
